FAERS Safety Report 12309955 (Version 1)
Quarter: 2016Q2

REPORT INFORMATION
  Report Type: Spontaneous
  Country: US (occurrence: None)
  Receive Date: 20160426
  Receipt Date: 20160426
  Transmission Date: 20160815
  Serious: Yes (Disabling)
  Sender: FDA-Public Use
  Company Number: None

PATIENT
  Age: 54 Year
  Sex: Male
  Weight: 81.65 kg

DRUGS (3)
  1. Z-BEC MULTIVITAMIN [Concomitant]
  2. AMPHETAMINE SALT 30MG #60, 30 MG MALLINCKRODT [Suspect]
     Active Substance: AMPHETAMINE ASPARTATE\AMPHETAMINE SULFATE\DEXTROAMPHETAMINE SACCHARATE\DEXTROAMPHETAMINE SULFATE
     Indication: ATTENTION DEFICIT/HYPERACTIVITY DISORDER
     Route: 048
  3. BUPROPRION [Concomitant]
     Active Substance: BUPROPION

REACTIONS (5)
  - Product solubility abnormal [None]
  - Product substitution issue [None]
  - Drug ineffective [None]
  - Dyspepsia [None]
  - Activities of daily living impaired [None]

NARRATIVE: CASE EVENT DATE: 20160405
